FAERS Safety Report 4957561-3 (Version None)
Quarter: 2006Q1

REPORT INFORMATION
  Report Type: 
  Country: None (occurrence: None)
  Receive Date: 20060330
  Receipt Date: 20060224
  Transmission Date: 20060701
  Serious: No
  Sender: FDA-Public Use
  Company Number: US-GLAXOSMITHKLINE-A0595119A

PATIENT
  Age: 57 Year
  Sex: Female

DRUGS (7)
  1. FLOVENT [Suspect]
     Indication: ASTHMA
     Dosage: 2PUFF TWICE PER DAY
     Route: 055
  2. PREMARIN [Concomitant]
  3. ATACAND [Concomitant]
  4. TENEX [Concomitant]
  5. CATAPRES [Concomitant]
  6. TIGAN [Concomitant]
  7. PHENERGAN HCL [Concomitant]

REACTIONS (1)
  - MUSCLE SPASMS [None]
